FAERS Safety Report 4332711-0 (Version None)
Quarter: 2004Q1

REPORT INFORMATION
  Report Type: 
  Country: None (occurrence: None)
  Receive Date: 20040330
  Receipt Date: 20040319
  Transmission Date: 20041129
  Serious: Yes (Hospitalization)
  Sender: FDA-Public Use
  Company Number: 2004204535IT

PATIENT
  Age: 49 Year
  Sex: Female

DRUGS (3)
  1. GABRIOX(LINEZOLID) TABLET [Suspect]
     Dosage: 600 MG, BID, ORAL
     Route: 048
  2. CEFTAZIDIME SODIUM [Concomitant]
  3. IMIPENEM (IMIPENEM) [Concomitant]

REACTIONS (3)
  - BLOOD PRESSURE INCREASED [None]
  - BRADYCARDIA [None]
  - ESCHERICHIA BACTERAEMIA [None]
